FAERS Safety Report 6722481-0 (Version None)
Quarter: 2010Q2

REPORT INFORMATION
  Report Type: 
  Country: None (occurrence: None)
  Receive Date: 20100506
  Receipt Date: 20080111
  Transmission Date: 20101027
  Serious: No
  Sender: FDA-Public Use
  Company Number: 2008-00014

PATIENT
  Age: 41 Year
  Sex: Female

DRUGS (3)
  1. ZICAM COLD REMEDY NASAL GEL [Suspect]
     Dosage: QID X FEW WEEKS
     Dates: start: 20071101
  2. CLARITIN [Concomitant]
  3. FLONASE [Concomitant]

REACTIONS (2)
  - ANOSMIA [None]
  - EPISTAXIS [None]
